FAERS Safety Report 24852675 (Version 1)
Quarter: 2025Q1

REPORT INFORMATION
  Report Type: Spontaneous
  Country: US (occurrence: US)
  Receive Date: 20250116
  Receipt Date: 20250116
  Transmission Date: 20250409
  Serious: No
  Sender: SK LIFE SCIENCE
  Company Number: US-SK LIFE SCIENCE, INC-SKPVG-2024-002676

PATIENT

DRUGS (6)
  1. XCOPRI [Suspect]
     Active Substance: CENOBAMATE
     Indication: Seizure
     Dosage: 12.5 MILLIGRAM, QD
     Route: 048
     Dates: start: 20240925, end: 20241008
  2. XCOPRI [Suspect]
     Active Substance: CENOBAMATE
     Dosage: 25 MILLIGRAM, QD
     Route: 048
     Dates: start: 20241009, end: 20241022
  3. XCOPRI [Suspect]
     Active Substance: CENOBAMATE
     Dosage: 50MG, ONCE A DAY
     Route: 048
     Dates: start: 20241023, end: 20241030
  4. XCOPRI [Suspect]
     Active Substance: CENOBAMATE
     Dosage: THE PATIENT STARTED BREAKING THE 50MG TABLETS IN HALF (25MG) ONCE A DAY
     Route: 048
     Dates: start: 20241031, end: 20241107
  5. KEPPRA [Concomitant]
     Active Substance: LEVETIRACETAM
     Indication: Product used for unknown indication
     Dosage: 4000 MILLIGRAM, QD
     Route: 065
     Dates: start: 2015
  6. ZONISAMIDE [Concomitant]
     Active Substance: ZONISAMIDE
     Indication: Product used for unknown indication
     Dosage: 300 MILLIGRAM, QD (ONCE A NIGHT)
     Route: 065
     Dates: start: 202407

REACTIONS (5)
  - Sleep disorder [Recovered/Resolved]
  - Feeling abnormal [Recovered/Resolved]
  - Wrong technique in product usage process [Recovered/Resolved]
  - Intentional underdose [Recovered/Resolved]
  - Malaise [Recovered/Resolved]

NARRATIVE: CASE EVENT DATE: 20240925
